APPROVED DRUG PRODUCT: VUMERITY
Active Ingredient: DIROXIMEL FUMARATE
Strength: 231MG
Dosage Form/Route: CAPSULE, DELAYED RELEASE;ORAL
Application: N211855 | Product #001 | TE Code: AB
Applicant: BIOGEN INC
Approved: Oct 29, 2019 | RLD: Yes | RS: Yes | Type: RX

PATENTS:
Patent 9090558 | Expires: Sep 20, 2033
Patent 10080733 | Expires: Sep 20, 2033
Patent 8669281 | Expires: Oct 29, 2033